FAERS Safety Report 6766983-X (Version None)
Quarter: 2010Q2

REPORT INFORMATION
  Report Type: 
  Country: None (occurrence: None)
  Receive Date: 20100611
  Receipt Date: 20100603
  Transmission Date: 20101027
  Serious: Yes (Other)
  Sender: FDA-Public Use
  Company Number: SE-ROCHE-707293

PATIENT
  Sex: Male

DRUGS (1)
  1. ROACTEMRA [Suspect]
     Indication: DRUG USE FOR UNKNOWN INDICATION
     Dosage: DRUG REPORTED: ROACTEMRA CONCENTRATION OF SOLUTION OF INFUSION 20 MG/ML
     Route: 065

REACTIONS (1)
  - DIABETES MELLITUS [None]
